APPROVED DRUG PRODUCT: THIORIDAZINE HYDROCHLORIDE
Active Ingredient: THIORIDAZINE HYDROCHLORIDE
Strength: 100MG/ML
Dosage Form/Route: CONCENTRATE;ORAL
Application: A040213 | Product #001
Applicant: PHARMACEUTICAL ASSOCIATES INC
Approved: May 29, 1998 | RLD: No | RS: No | Type: DISCN